FAERS Safety Report 11193262 (Version 1)
Quarter: 2015Q2

REPORT INFORMATION
  Report Type: Spontaneous
  Country: US (occurrence: None)
  Receive Date: 20150615
  Receipt Date: 20150615
  Transmission Date: 20150821
  Serious: Yes (Hospitalization)
  Sender: FDA-Public Use
  Company Number: None

PATIENT
  Age: 81 Year
  Sex: Female
  Weight: 61.7 kg

DRUGS (16)
  1. CALCIUM CARBONATE. [Concomitant]
     Active Substance: CALCIUM CARBONATE
  2. CHOLECALCIFEROL [Concomitant]
     Active Substance: CHOLECALCIFEROL
  3. HYDROCHLOROTHIAZIDE. [Concomitant]
     Active Substance: HYDROCHLOROTHIAZIDE
  4. ALBUTEROL INHALER [Concomitant]
     Active Substance: ALBUTEROL
  5. LATANOPROST. [Concomitant]
     Active Substance: LATANOPROST
  6. ENALAPRIL 10 MG [Suspect]
     Active Substance: ENALAPRIL
     Indication: ESSENTIAL HYPERTENSION
     Route: 048
  7. BRIMONIDINE [Concomitant]
     Active Substance: BRIMONIDINE\BRIMONIDINE TARTRATE
  8. FLUTICASONE NASAL SPRAY [Concomitant]
     Active Substance: FLUTICASONE\FLUTICASONE PROPIONATE
  9. FLUTICASONE INHALER [Concomitant]
  10. LORATADINE. [Concomitant]
     Active Substance: LORATADINE
  11. NYSTATIN CREAM [Concomitant]
     Active Substance: NYSTATIN
  12. DILTIAZEM [Concomitant]
     Active Substance: DILTIAZEM
  13. DORZOLAMIDE [Concomitant]
     Active Substance: DORZOLAMIDE
  14. METFORMIN [Concomitant]
     Active Substance: METFORMIN HYDROCHLORIDE
  15. COLESTIPOL [Concomitant]
     Active Substance: COLESTIPOL
  16. BETAMETHASONE VALERATE. [Concomitant]
     Active Substance: BETAMETHASONE VALERATE

REACTIONS (3)
  - Lip swelling [None]
  - Laryngeal oedema [None]
  - Obstructive airways disorder [None]

NARRATIVE: CASE EVENT DATE: 20150112
